FAERS Safety Report 23673694 (Version 1)
Quarter: 2024Q1

REPORT INFORMATION
  Report Type: Report from Study
  Country: MX (occurrence: MX)
  Receive Date: 20240326
  Receipt Date: 20240326
  Transmission Date: 20240410
  Serious: Yes (Death, Hospitalization)
  Sender: FDA-Public Use
  Company Number: MX-002147023-NVSC2024MX057704

PATIENT
  Sex: Female
  Weight: 54 kg

DRUGS (1)
  1. MYFORTIC [Suspect]
     Active Substance: MYCOPHENOLATE SODIUM
     Indication: Renal transplant
     Dosage: 1 DOSAGE FORM, QD (STARTED FROM MANY YEARS)
     Route: 048

REACTIONS (3)
  - Pneumonia [Fatal]
  - Inappropriate schedule of product administration [Unknown]
  - Product use issue [Unknown]
